FAERS Safety Report 6072440-9 (Version None)
Quarter: 2009Q1

REPORT INFORMATION
  Report Type: 
  Country: None (occurrence: None)
  Receive Date: 20090210
  Receipt Date: 20090205
  Transmission Date: 20090719
  Serious: Yes (Hospitalization)
  Sender: FDA-Public Use
  Company Number: DE-BRISTOL-MYERS SQUIBB COMPANY-14498588

PATIENT
  Age: 75 Year
  Sex: Male
  Weight: 78 kg

DRUGS (10)
  1. CETUXIMAB [Suspect]
     Indication: COLORECTAL CANCER
     Dosage: RECENT INFUSION ON 22AUG07
     Route: 042
     Dates: start: 20070815, end: 20080219
  2. IRINOTECAN HCL [Suspect]
     Indication: COLORECTAL CANCER
     Dosage: RECENT INFUSION ON 15AUG07
     Route: 042
     Dates: start: 20070815, end: 20080219
  3. FLUOROURACIL [Suspect]
     Indication: COLORECTAL CANCER
     Dosage: RECENT INFUSION ON 17AUG07
     Route: 042
     Dates: start: 20070815, end: 20080219
  4. FOLINIC ACID [Suspect]
     Indication: COLORECTAL CANCER
     Dosage: RECENT INFUSION ON 16AUG07
     Route: 042
     Dates: start: 20070815, end: 20080219
  5. PANTOZOL [Concomitant]
     Route: 048
     Dates: start: 20070815
  6. DURAGESIC-100 [Concomitant]
     Route: 062
  7. KEVATRIL [Concomitant]
     Route: 042
     Dates: start: 20070815
  8. FORTECORTIN [Concomitant]
     Route: 042
     Dates: start: 20070815
  9. FENISTIL [Concomitant]
     Route: 042
     Dates: start: 20070815
  10. ZYLORIC [Concomitant]
     Route: 048
     Dates: start: 20070815

REACTIONS (1)
  - DEEP VEIN THROMBOSIS [None]
